FAERS Safety Report 18690893 (Version 3)
Quarter: 2021Q3

REPORT INFORMATION
  Report Type: Spontaneous
  Country: US (occurrence: US)
  Receive Date: 20210101
  Receipt Date: 20210915
  Transmission Date: 20211014
  Serious: No
  Sender: FDA-Public Use
  Company Number: NVSC2020US344452

PATIENT

DRUGS (1)
  1. KESIMPTA [Suspect]
     Active Substance: OFATUMUMAB
     Indication: MULTIPLE SCLEROSIS
     Dosage: 20 MG, QW (BENEATH THE SKIN,USUALLY VIA INJECTION)
     Route: 058
     Dates: start: 20201226, end: 20201226

REACTIONS (4)
  - Asthenia [Unknown]
  - Oropharyngeal pain [Unknown]
  - Injection related reaction [Unknown]
  - Vision blurred [Unknown]

NARRATIVE: CASE EVENT DATE: 20201226
